FAERS Safety Report 4699909-3 (Version None)
Quarter: 2005Q2

REPORT INFORMATION
  Report Type: 
  Country: None (occurrence: None)
  Receive Date: 20050623
  Receipt Date: 20050608
  Transmission Date: 20051028
  Serious: Yes (Other)
  Sender: FDA-Public Use
  Company Number: 2005-BP-09912RO

PATIENT
  Sex: Male

DRUGS (12)
  1. LEUCOVORIN CALCIUM [Suspect]
     Indication: COLON CANCER
     Dosage: 75 MG /DAY, PO
     Route: 048
     Dates: start: 20041118, end: 20041208
  2. UFT  (GEGAFUR URACIL) [Suspect]
     Indication: COLON CANCER
     Dosage: 2.25 GRAM/DAY, PO
     Route: 048
     Dates: start: 20041118, end: 20041208
  3. HERBAL PREPARATION (HERBAL PREPARATION) [Concomitant]
  4. IRINOTECAN (IRINOTECAN) [Concomitant]
  5. KYTRIL [Concomitant]
  6. DECADRON [Concomitant]
  7. METHYLCOBOL (MECOBALAMIN) [Concomitant]
  8. DIGOXIN [Concomitant]
  9. TICLOPIDINE HCL [Concomitant]
  10. LASIX [Concomitant]
  11. SELBEX (TEPRENONE) [Concomitant]
  12. MAGNESIUM OXIDE (MAGNESIUM OXIDE) [Concomitant]

REACTIONS (2)
  - NAUSEA [None]
  - VOMITING [None]
